FAERS Safety Report 6193721-4 (Version None)
Quarter: 2009Q2

REPORT INFORMATION
  Report Type: 
  Country: None (occurrence: None)
  Receive Date: 20090518
  Receipt Date: 20090506
  Transmission Date: 20091009
  Serious: Yes (Hospitalization)
  Sender: FDA-Public Use
  Company Number: FR-WYE-H09355209

PATIENT
  Sex: Female

DRUGS (5)
  1. CORDARONE [Suspect]
     Dosage: ^HALF UNIT^, 5 TIMES PER WEEK
     Route: 065
  2. NOCTRAN 10 [Suspect]
     Route: 048
  3. ALPRESS LP [Suspect]
     Dosage: DOSE UNKNOWN
     Route: 048
  4. DITROPAN [Suspect]
     Dosage: DOSE UNKNOWN
     Route: 048
  5. LASIX [Suspect]
     Route: 048

REACTIONS (3)
  - BRADYCARDIA [None]
  - FALL [None]
  - GENERAL PHYSICAL HEALTH DETERIORATION [None]
